FAERS Safety Report 16219227 (Version 2)
Quarter: 2019Q2

REPORT INFORMATION
  Report Type: Report from Study
  Country: US (occurrence: US)
  Receive Date: 20190419
  Receipt Date: 20190426
  Transmission Date: 20190711
  Serious: Yes (Hospitalization)
  Sender: FDA-Public Use
  Company Number: US-AMGEN-USASL2019007576

PATIENT
  Age: 64 Year
  Sex: Female

DRUGS (3)
  1. REPATHA [Suspect]
     Active Substance: EVOLOCUMAB
     Indication: LIPIDS ABNORMAL
  2. REPATHA [Suspect]
     Active Substance: EVOLOCUMAB
     Indication: BLOOD CHOLESTEROL INCREASED
  3. REPATHA [Suspect]
     Active Substance: EVOLOCUMAB
     Indication: HYPERCHOLESTEROLAEMIA
     Dosage: 140 MG, Q2WK
     Route: 058
     Dates: start: 201812

REACTIONS (15)
  - Anti-VGKC antibody positive [Unknown]
  - Hallucination [Unknown]
  - Confusional state [Unknown]
  - Psychotic disorder [Unknown]
  - Asthenia [Unknown]
  - Nasal discomfort [Unknown]
  - Rhinorrhoea [Unknown]
  - Stress [Unknown]
  - Chorea [Unknown]
  - Ataxia [Unknown]
  - Neuralgia [Unknown]
  - Chills [Unknown]
  - Encephalopathy [Unknown]
  - Diarrhoea [Unknown]
  - Sneezing [Unknown]

NARRATIVE: CASE EVENT DATE: 20190131
